FAERS Safety Report 6868489-6 (Version None)
Quarter: 2010Q3

REPORT INFORMATION
  Report Type: 
  Country: None (occurrence: None)
  Receive Date: 20100722
  Receipt Date: 20080602
  Transmission Date: 20110219
  Serious: Yes (Hospitalization)
  Sender: FDA-Public Use
  Company Number: US-PFIZER INC-2008047029

PATIENT
  Sex: Female
  Weight: 45.454 kg

DRUGS (4)
  1. CHANTIX [Suspect]
     Indication: SMOKING CESSATION THERAPY
     Dates: start: 20080416
  2. EFFEXOR [Concomitant]
  3. ZYPREXA [Concomitant]
  4. CLONAZEPAM [Concomitant]

REACTIONS (1)
  - OEDEMA [None]
